FAERS Safety Report 8854179 (Version 1)
Quarter: 2012Q4

REPORT INFORMATION
  Report Type: Spontaneous
  Country: US (occurrence: None)
  Receive Date: 20121019
  Receipt Date: 20121019
  Transmission Date: 20130627
  Serious: Yes (Other)
  Sender: FDA-Public Use
  Company Number: None

PATIENT
  Sex: Female
  Weight: 48.54 kg

DRUGS (1)
  1. AZOPT [Suspect]
     Indication: GLAUCOMA
     Dosage: 1 drop in right eye BID Ophthalmic
     Route: 047
     Dates: start: 20120501, end: 20121017

REACTIONS (4)
  - Hypoaesthesia oral [None]
  - Muscle tightness [None]
  - Dry mouth [None]
  - Feeling abnormal [None]
